FAERS Safety Report 9681693 (Version 1)
Quarter: 2013Q4

REPORT INFORMATION
  Report Type: Spontaneous
  Country: US (occurrence: US)
  Receive Date: 20131111
  Receipt Date: 20131111
  Transmission Date: 20140711
  Serious: Yes (Other)
  Sender: FDA-Public Use
  Company Number: US-ELI_LILLY_AND_COMPANY-US201311000207

PATIENT
  Age: 71 Year
  Sex: Male

DRUGS (1)
  1. EFFIENT [Suspect]
     Indication: MYOCARDIAL INFARCTION
     Dosage: UNK, WEEKLY (1/W)
     Route: 065
     Dates: start: 201206

REACTIONS (2)
  - Cerebrovascular accident [Unknown]
  - Off label use [Unknown]
